FAERS Safety Report 11427357 (Version 5)
Quarter: 2020Q4

REPORT INFORMATION
  Report Type: Spontaneous
  Country: US (occurrence: US)
  Receive Date: 20150827
  Receipt Date: 20201029
  Transmission Date: 20210113
  Serious: No
  Sender: FDA-Public Use
  Company Number: US-SA-2015SA073020

PATIENT

DRUGS (6)
  1. FABRAZYME [Suspect]
     Active Substance: AGALSIDASE BETA
     Dosage: 1.19 MG/KG, QOW, (70 MG)
     Route: 041
     Dates: start: 2020, end: 20200622
  2. FABRAZYME [Suspect]
     Active Substance: AGALSIDASE BETA
     Indication: FABRY^S DISEASE
     Dosage: 0.99 MG/KG, QOW, (58.5 MG)
     Route: 041
     Dates: start: 20150501
  3. FABRAZYME [Suspect]
     Active Substance: AGALSIDASE BETA
     Dosage: 1.19 MG/KG, QOW,(70 MG)
     Route: 041
     Dates: start: 20200130, end: 2020
  4. FABRAZYME [Suspect]
     Active Substance: AGALSIDASE BETA
     Dosage: 1.19 MG/KG, QOW
     Route: 041
     Dates: start: 2020
  5. ACETAMINOPHEN. [Concomitant]
     Active Substance: ACETAMINOPHEN
     Indication: PREMEDICATION
     Dosage: UNK
     Route: 065
  6. BENADRYL [Concomitant]
     Active Substance: DIPHENHYDRAMINE HYDROCHLORIDE
     Indication: PREMEDICATION
     Dosage: 25 MG,UNK
     Route: 042

REACTIONS (6)
  - Migraine [Unknown]
  - Pruritus [Recovered/Resolved]
  - Social anxiety disorder [Unknown]
  - Rash [Recovered/Resolved]
  - Product dose omission issue [Unknown]
  - Fear [Unknown]

NARRATIVE: CASE EVENT DATE: 20150501
